FAERS Safety Report 9888491 (Version 1)
Quarter: 2014Q1

REPORT INFORMATION
  Report Type: Spontaneous
  Country: DK (occurrence: DK)
  Receive Date: 20140211
  Receipt Date: 20140211
  Transmission Date: 20141002
  Serious: Yes (Disabling, Other)
  Sender: FDA-Public Use
  Company Number: DK-ACTAVIS-2014-02268

PATIENT
  Sex: Male

DRUGS (1)
  1. CIPROFLOXACIN HYDROCHLORIDE (UNKNOWN) [Suspect]
     Indication: CYSTITIS
     Dosage: UNK
     Route: 065

REACTIONS (5)
  - Tendon rupture [Unknown]
  - Tendonitis [Unknown]
  - Tendon pain [Unknown]
  - Gait disturbance [Unknown]
  - Hypokinesia [Unknown]
